FAERS Safety Report 6233545-2 (Version None)
Quarter: 2009Q2

REPORT INFORMATION
  Report Type: 
  Country: None (occurrence: None)
  Receive Date: 20090615
  Receipt Date: 20090529
  Transmission Date: 20091009
  Serious: Yes (Other)
  Sender: FDA-Public Use
  Company Number: US-000306

PATIENT
  Sex: Female
  Weight: 74.8435 kg

DRUGS (9)
  1. SOMATROPIN [Suspect]
     Indication: MYALGIA
     Dosage: 0.4 MG 6X/WEEK
     Dates: start: 20080401, end: 20081001
  2. SOMATROPIN [Suspect]
     Indication: MYALGIA
     Dosage: 0.4 MG 6X/WEEK
     Dates: start: 20090201, end: 20090427
  3. THYROID TAB [Concomitant]
  4. CORTISONE [Concomitant]
  5. DAILY MULTIVITAMIN [Concomitant]
  6. POLICOSANOL [Concomitant]
  7. CALCIFEROL [Concomitant]
  8. ASPIRIN [Concomitant]
  9. CALCITONIN [Concomitant]

REACTIONS (3)
  - HYPERSENSITIVITY [None]
  - PRURITUS GENERALISED [None]
  - RASH GENERALISED [None]
